FAERS Safety Report 18355947 (Version 2)
Quarter: 2020Q4

REPORT INFORMATION
  Report Type: Spontaneous
  Country: US (occurrence: US)
  Receive Date: 20201007
  Receipt Date: 20201020
  Transmission Date: 20210114
  Serious: Yes (Hospitalization, Other)
  Sender: FDA-Public Use
  Company Number: US-AMNEAL PHARMACEUTICALS-2020-AMRX-03036

PATIENT
  Sex: Female

DRUGS (4)
  1. PROPRANOLOL HYDROCHLORIDE IR [Suspect]
     Active Substance: PROPRANOLOL HYDROCHLORIDE
     Indication: HYPERTENSION
     Dosage: 40 MILLIGRAM, MORNING
     Route: 065
     Dates: start: 20200921
  2. XANAX [Concomitant]
     Active Substance: ALPRAZOLAM
     Indication: PRODUCT USED FOR UNKNOWN INDICATION
     Dosage: AS NEEDED
     Route: 065
  3. PROPRANOLOL HYDROCHLORIDE IR [Suspect]
     Active Substance: PROPRANOLOL HYDROCHLORIDE
     Dosage: 10 MG AT NIGHT
     Route: 065
  4. HYDROCHLOROTHIAZIDE. [Concomitant]
     Active Substance: HYDROCHLOROTHIAZIDE
     Indication: PRODUCT USED FOR UNKNOWN INDICATION
     Dosage: 25 MILLIGRAM, MORNING
     Route: 065

REACTIONS (5)
  - Head discomfort [Recovered/Resolved]
  - Blood pressure increased [Recovered/Resolved]
  - Confusional state [Recovered/Resolved]
  - Dizziness [Recovered/Resolved]
  - Product substitution issue [Unknown]

NARRATIVE: CASE EVENT DATE: 20200921
